FAERS Safety Report 21451064 (Version 1)
Quarter: 2022Q4

REPORT INFORMATION
  Report Type: Spontaneous
  Country: IT (occurrence: IT)
  Receive Date: 20221013
  Receipt Date: 20221013
  Transmission Date: 20230113
  Serious: Yes (Other)
  Sender: FDA-Public Use
  Company Number: IT-BRISTOL-MYERS SQUIBB COMPANY-2022-119347

PATIENT
  Age: 69 Year
  Sex: Male

DRUGS (2)
  1. YERVOY [Suspect]
     Active Substance: IPILIMUMAB
     Indication: Lung neoplasm malignant
     Route: 042
     Dates: start: 20220613, end: 20220613
  2. OPDIVO [Suspect]
     Active Substance: NIVOLUMAB
     Indication: Lung neoplasm malignant
     Route: 042
     Dates: start: 20220613, end: 20220613

REACTIONS (1)
  - Cortisol increased [Recovering/Resolving]

NARRATIVE: CASE EVENT DATE: 20220622
